FAERS Safety Report 15240873 (Version 1)
Quarter: 2018Q3

REPORT INFORMATION
  Report Type: Spontaneous
  Country: US (occurrence: US)
  Receive Date: 20180711
  Receipt Date: 20180711
  Transmission Date: 20181010
  Serious: Yes (Other)
  Sender: FDA-Public Use
  Company Number: None

PATIENT
  Age: 55 Year
  Sex: Female
  Weight: 69.75 kg

DRUGS (9)
  1. AUSTEDO [Suspect]
     Active Substance: DEUTETRABENAZINE
     Indication: TARDIVE DYSKINESIA
     Route: 048
  2. PRAZOSIN. [Concomitant]
     Active Substance: PRAZOSIN
  3. OMEPRAZOLE. [Concomitant]
     Active Substance: OMEPRAZOLE
  4. SILENOR [Concomitant]
     Active Substance: DOXEPIN HYDROCHLORIDE
  5. PAROXETINE. [Concomitant]
     Active Substance: PAROXETINE
  6. AUSTEDO [Concomitant]
     Active Substance: DEUTETRABENAZINE
  7. PROAIR HFA [Concomitant]
     Active Substance: ALBUTEROL SULFATE
  8. VITAMIN D [Concomitant]
     Active Substance: CHOLECALCIFEROL
  9. SAPHRIS [Concomitant]
     Active Substance: ASENAPINE MALEATE

REACTIONS (1)
  - Anal incontinence [None]
